FAERS Safety Report 17423372 (Version 2)
Quarter: 2020Q1

REPORT INFORMATION
  Report Type: Spontaneous
  Country: TR (occurrence: TR)
  Receive Date: 20200217
  Receipt Date: 20200228
  Transmission Date: 20200409
  Serious: Yes (Death, Other)
  Sender: FDA-Public Use
  Company Number: TR-ABBVIE-20K-161-3277944-00

PATIENT
  Age: 59 Year
  Sex: Male

DRUGS (13)
  1. VALTREX [Concomitant]
     Active Substance: VALACYCLOVIR HYDROCHLORIDE
     Indication: ORAL HERPES
  2. MEROPENEM. [Concomitant]
     Active Substance: MEROPENEM
     Indication: PNEUMONIA
     Dates: start: 20200125
  3. VENCLYXTO [Suspect]
     Active Substance: VENETOCLAX
     Indication: CHRONIC LYMPHOCYTIC LEUKAEMIA
     Route: 048
     Dates: start: 20200204, end: 20200206
  4. URIKOLIZ [Concomitant]
     Active Substance: ALLOPURINOL
     Indication: PROPHYLAXIS
     Dates: start: 20200203
  5. VALTREX [Concomitant]
     Active Substance: VALACYCLOVIR HYDROCHLORIDE
     Indication: NASAL HERPES
  6. MEROPENEM. [Concomitant]
     Active Substance: MEROPENEM
     Indication: ORAL HERPES
  7. TARGOCID [Concomitant]
     Active Substance: TEICOPLANIN
     Indication: HERPES VIRUS INFECTION
  8. VALTREX [Concomitant]
     Active Substance: VALACYCLOVIR HYDROCHLORIDE
     Indication: PNEUMONIA
     Dates: start: 20200114
  9. TIGECID [Concomitant]
     Indication: PRODUCT USED FOR UNKNOWN INDICATION
  10. TARGOCID [Concomitant]
     Active Substance: TEICOPLANIN
     Indication: PNEUMONIA
     Dates: start: 20200114
  11. MEROPENEM. [Concomitant]
     Active Substance: MEROPENEM
     Indication: HERPES VIRUS INFECTION
  12. VORICONAZOLE. [Suspect]
     Active Substance: VORICONAZOLE
     Indication: PRODUCT USED FOR UNKNOWN INDICATION
     Route: 065
  13. TARGOCID [Concomitant]
     Active Substance: TEICOPLANIN
     Indication: ORAL HERPES

REACTIONS (5)
  - Hypocalcaemia [Unknown]
  - Blood phosphorus increased [Unknown]
  - Tumour lysis syndrome [Unknown]
  - Death [Fatal]
  - Drug interaction [Unknown]

NARRATIVE: CASE EVENT DATE: 202002
